FAERS Safety Report 24593961 (Version 3)
Quarter: 2025Q1

REPORT INFORMATION
  Report Type: Spontaneous
  Country: US (occurrence: US)
  Receive Date: 20241108
  Receipt Date: 20250109
  Transmission Date: 20250408
  Serious: Yes (Other)
  Sender: PFIZER
  Company Number: US-PFIZER INC-202400256427

PATIENT
  Age: 32 Year
  Sex: Male

DRUGS (9)
  1. ADCETRIS [Suspect]
     Active Substance: BRENTUXIMAB VEDOTIN
     Indication: Hodgkin^s disease
     Dosage: 150 MG, EVERY 3 WEEKS
     Route: 042
     Dates: start: 20221007
  2. ADCETRIS [Suspect]
     Active Substance: BRENTUXIMAB VEDOTIN
     Dosage: 1.8 MG/KG EVERY 3 WKS FOR 1 YEAR (OR 16 CYCLES)
     Dates: start: 20240111
  3. NIVOLUMAB [Concomitant]
     Active Substance: NIVOLUMAB
     Dates: start: 20230717
  4. NIVOLUMAB [Concomitant]
     Active Substance: NIVOLUMAB
     Dates: start: 20230807
  5. NIVOLUMAB [Concomitant]
     Active Substance: NIVOLUMAB
     Dates: start: 20230828
  6. SHINGRIX [Concomitant]
     Active Substance: RECOMBINANT VARICELLA ZOSTER VIRUS (VZV) GLYCOPROTEIN E
     Indication: Infection prophylaxis
     Dates: start: 20240404, end: 20240404
  7. SHINGRIX [Concomitant]
     Active Substance: RECOMBINANT VARICELLA ZOSTER VIRUS (VZV) GLYCOPROTEIN E
     Dates: start: 20240620, end: 20240620
  8. ACYCLOVIR [Concomitant]
     Active Substance: ACYCLOVIR
     Dosage: 400 MG, 2X/DAY
  9. BACTRIM DS [Concomitant]
     Active Substance: SULFAMETHOXAZOLE\TRIMETHOPRIM
     Indication: Infection prophylaxis

REACTIONS (2)
  - Neutropenia [Unknown]
  - Catheter site dehiscence [Unknown]
